FAERS Safety Report 8586135-0 (Version None)
Quarter: 2012Q3

REPORT INFORMATION
  Report Type: 
  Country: None (occurrence: None)
  Receive Date: 20120810
  Receipt Date: 20120801
  Transmission Date: 20120928
  Serious: Yes (Hospitalization, Other)
  Sender: FDA-Public Use
  Company Number: US-ASTRAZENECA-2010SE60518

PATIENT
  Age: 58 Year
  Sex: Female

DRUGS (10)
  1. LYRICA [Concomitant]
  2. CRESTOR [Suspect]
     Route: 048
  3. ADDERALL 5 [Concomitant]
  4. TOPAMAX [Concomitant]
  5. VITAMIN D [Concomitant]
  6. CYMBALTA [Concomitant]
  7. LEVOXYL [Concomitant]
  8. POTASSIUM CHLORIDE [Concomitant]
  9. TOPROL-XL [Concomitant]
     Route: 048
  10. ALLOPURINOL [Concomitant]

REACTIONS (11)
  - PANCREATITIS ACUTE [None]
  - ABDOMINAL HERNIA [None]
  - POLYCYTHAEMIA [None]
  - ADVERSE EVENT [None]
  - APPARENT DEATH [None]
  - PAIN [None]
  - ASTHENIA [None]
  - RESPIRATORY FAILURE [None]
  - PLEURAL EFFUSION [None]
  - DEEP VEIN THROMBOSIS [None]
  - EMOTIONAL DISORDER [None]
